FAERS Safety Report 16045271 (Version 1)
Quarter: 2019Q1

REPORT INFORMATION
  Report Type: Spontaneous
  Country: IL (occurrence: IL)
  Receive Date: 20190307
  Receipt Date: 20190307
  Transmission Date: 20190418
  Serious: Yes (Hospitalization)
  Sender: FDA-Public Use
  Company Number: IL-SA-2019SA041472

PATIENT
  Age: 68 Year
  Sex: Male

DRUGS (2)
  1. SOLOSTAR [Suspect]
     Active Substance: DEVICE
     Dosage: UNK UNK, UNK
  2. SULIQUA [Suspect]
     Active Substance: INSULIN GLARGINE\LIXISENATIDE
     Dosage: 17 U, QD
     Route: 058
     Dates: start: 20190210

REACTIONS (1)
  - Coronary artery disease [Unknown]

NARRATIVE: CASE EVENT DATE: 20190220
